FAERS Safety Report 16011423 (Version 2)
Quarter: 2019Q1

REPORT INFORMATION
  Report Type: Report from Study
  Country: US (occurrence: US)
  Receive Date: 20190227
  Receipt Date: 20190305
  Transmission Date: 20190418
  Serious: Yes (Hospitalization, Other)
  Sender: FDA-Public Use
  Company Number: US-GILEAD-2019-0393120

PATIENT
  Age: 72 Year
  Sex: Female
  Weight: 99.1 kg

DRUGS (12)
  1. UPTRAVI [Concomitant]
     Active Substance: SELEXIPAG
  2. ELIQUIS [Concomitant]
     Active Substance: APIXABAN
  3. SIMVASTATIN. [Concomitant]
     Active Substance: SIMVASTATIN
  4. SILDENAFIL. [Concomitant]
     Active Substance: SILDENAFIL
  5. AMIODARONE [Concomitant]
     Active Substance: AMIODARONE
  6. REVLIMID [Concomitant]
     Active Substance: LENALIDOMIDE
  7. TORSEMIDE. [Concomitant]
     Active Substance: TORSEMIDE
  8. ZYRTEC [Concomitant]
     Active Substance: CETIRIZINE HYDROCHLORIDE
  9. AMBRISENTAN [Suspect]
     Active Substance: AMBRISENTAN
     Indication: PULMONARY ARTERIAL HYPERTENSION
     Dosage: 10 MG, QD
     Route: 065
  10. SPIRONOLACTONE. [Concomitant]
     Active Substance: SPIRONOLACTONE
  11. OMEPRAZOLE. [Concomitant]
     Active Substance: OMEPRAZOLE
  12. GABAPENTIN. [Concomitant]
     Active Substance: GABAPENTIN

REACTIONS (2)
  - Product dose omission [Recovered/Resolved]
  - Pneumonia [Recovered/Resolved]

NARRATIVE: CASE EVENT DATE: 20190222
